FAERS Safety Report 25786928 (Version 1)
Quarter: 2025Q3

REPORT INFORMATION
  Report Type: Spontaneous
  Country: US (occurrence: US)
  Receive Date: 20250910
  Receipt Date: 20250910
  Transmission Date: 20251020
  Serious: No
  Sender: ANI
  Company Number: US-ANIPHARMA-2025-US-015704

PATIENT
  Age: 44 Year
  Sex: Female
  Weight: 56.7 kg

DRUGS (1)
  1. CORTICOTROPIN [Suspect]
     Active Substance: CORTICOTROPIN
     Indication: Multiple sclerosis
     Route: 058
     Dates: start: 20250211

REACTIONS (2)
  - Eye swelling [Unknown]
  - Swelling face [Unknown]
